FAERS Safety Report 7723067-1 (Version None)
Quarter: 2011Q3

REPORT INFORMATION
  Report Type: 
  Country: None (occurrence: None)
  Receive Date: 20110901
  Receipt Date: 20110829
  Transmission Date: 20111222
  Serious: Yes (Death, Other)
  Sender: FDA-Public Use
  Company Number: ES-GENZYME-THYM-1002016

PATIENT
  Sex: Male
  Weight: 5.6 kg

DRUGS (8)
  1. THYMOGLOBULIN [Suspect]
     Indication: PROPHYLAXIS AGAINST TRANSPLANT REJECTION
     Dosage: 5 MG/KG, UNK
     Route: 042
     Dates: start: 20041209
  2. CORTICOSTEROIDS [Suspect]
     Indication: AUTOIMMUNE THROMBOCYTOPENIA
  3. ANFOTERICINA [Concomitant]
     Indication: PRODUCT USED FOR UNKNOWN INDICATION
     Route: 065
  4. TACROLIMUS [Suspect]
     Indication: PROPHYLAXIS AGAINST TRANSPLANT REJECTION
     Route: 065
  5. CORTICOSTEROIDS [Suspect]
     Indication: COOMBS NEGATIVE HAEMOLYTIC ANAEMIA
     Route: 065
  6. TRIMETHOPRIM [Concomitant]
     Indication: PRODUCT USED FOR UNKNOWN INDICATION
     Route: 065
  7. RAPAMUNE [Concomitant]
     Indication: PROPHYLAXIS AGAINST TRANSPLANT REJECTION
     Route: 065
  8. GANCICLOVIR [Concomitant]
     Indication: PRODUCT USED FOR UNKNOWN INDICATION
     Route: 065

REACTIONS (3)
  - COOMBS NEGATIVE HAEMOLYTIC ANAEMIA [None]
  - AUTOIMMUNE THROMBOCYTOPENIA [None]
  - PNEUMOCYSTIS JIROVECI INFECTION [None]
